FAERS Safety Report 7122758-3 (Version None)
Quarter: 2010Q4

REPORT INFORMATION
  Report Type: 
  Country: None (occurrence: None)
  Receive Date: 20101124
  Receipt Date: 20101110
  Transmission Date: 20110411
  Serious: Yes (Hospitalization)
  Sender: FDA-Public Use
  Company Number: JP-PFIZER INC-2010156835

PATIENT
  Age: 73 Year
  Sex: Male
  Weight: 58.9 kg

DRUGS (11)
  1. ANCARON [Suspect]
     Indication: VENTRICULAR TACHYCARDIA
     Dosage: 100 MG, 2X/DAY
     Dates: start: 20091019, end: 20101108
  2. ANCARON [Suspect]
     Indication: ATRIAL FIBRILLATION
     Dosage: 100 MG, 1X/DAY
     Dates: start: 20101109
  3. ASPIRIN [Concomitant]
  4. AZELASTINE HCL [Concomitant]
  5. BLOPRESS [Concomitant]
  6. PERSANTIN [Concomitant]
  7. GLIMICRON [Concomitant]
  8. GASTER [Concomitant]
  9. WARFARIN POTASSIUM [Concomitant]
  10. NIZORAL [Concomitant]
  11. MUCOSOLVAN [Concomitant]

REACTIONS (3)
  - COMPUTERISED TOMOGRAM ABNORMAL [None]
  - FATIGUE [None]
  - PNEUMONIA [None]
